FAERS Safety Report 5633167-8 (Version None)
Quarter: 2008Q1

REPORT INFORMATION
  Report Type: 
  Country: None (occurrence: None)
  Receive Date: 20080221
  Receipt Date: 20080211
  Transmission Date: 20080703
  Serious: Yes (Life-Threatening)
  Sender: FDA-Public Use
  Company Number: GB-AVENTIS-200811415GDDC

PATIENT
  Age: 73 Year
  Sex: Male

DRUGS (8)
  1. INSULIN GLARGINE [Suspect]
     Route: 058
     Dates: start: 20071129, end: 20080117
  2. DIGOXIN [Concomitant]
     Indication: ATRIAL FIBRILLATION
     Dates: start: 20060101
  3. DILTIAZEM [Concomitant]
     Dates: start: 20070101
  4. FUROSEMIDE [Concomitant]
     Dates: start: 20070101
  5. GLICLAZIDE [Concomitant]
     Dates: start: 20050101
  6. LISINOPRIL [Concomitant]
     Dates: start: 20040101
  7. METFORMIN HCL [Concomitant]
     Dates: start: 20030101
  8. SIMVASTATIN [Concomitant]
     Dates: start: 20070101

REACTIONS (2)
  - AGGRESSION [None]
  - MOOD ALTERED [None]
